FAERS Safety Report 17921316 (Version 1)
Quarter: 2020Q2

REPORT INFORMATION
  Report Type: Spontaneous
  Country: JP (occurrence: JP)
  Receive Date: 20200622
  Receipt Date: 20200622
  Transmission Date: 20200714
  Serious: Yes (Other)
  Sender: FDA-Public Use
  Company Number: JP-GUERBET-JP-20200086

PATIENT

DRUGS (3)
  1. LIPIODOL [Suspect]
     Active Substance: ETHIODIZED OIL
     Indication: SCLEROTHERAPY
     Route: 042
  2. HISTOACRYL [Concomitant]
     Active Substance: ENBUCRILATE
     Indication: SCLEROTHERAPY
     Route: 042
  3. ETHANOLAMINE OLEATE. [Concomitant]
     Active Substance: ETHANOLAMINE OLEATE
     Indication: SCLEROTHERAPY
     Route: 042

REACTIONS (2)
  - Product use in unapproved indication [Recovered/Resolved]
  - Portal vein thrombosis [Recovered/Resolved]
